FAERS Safety Report 4990274-0 (Version None)
Quarter: 2006Q2

REPORT INFORMATION
  Report Type: 
  Country: None (occurrence: None)
  Receive Date: 20060503
  Receipt Date: 20060420
  Transmission Date: 20061013
  Serious: Yes (Other)
  Sender: FDA-Public Use
  Company Number: GB-GLAXOSMITHKLINE-B0420993A

PATIENT
  Age: 41 Year

DRUGS (4)
  1. CEFUROXIME AXETIL [Suspect]
     Route: 042
     Dates: start: 20060404
  2. RANITIDINE [Concomitant]
     Dosage: 150MG PER DAY
     Route: 048
  3. METOCLOPRAMIDE [Concomitant]
     Dosage: 10MG SINGLE DOSE
     Route: 065
  4. CIPROXIN [Concomitant]
     Indication: LOWER RESPIRATORY TRACT INFECTION
     Dosage: 50MG PER DAY
     Route: 048

REACTIONS (4)
  - CHEST DISCOMFORT [None]
  - DRUG HYPERSENSITIVITY [None]
  - FEELING HOT [None]
  - TACHYCARDIA [None]
